FAERS Safety Report 7135402-6 (Version None)
Quarter: 2010Q4

REPORT INFORMATION
  Report Type: 
  Country: None (occurrence: None)
  Receive Date: 20101203
  Receipt Date: 20101117
  Transmission Date: 20110411
  Serious: Yes (Hospitalization, Disabling, Other)
  Sender: FDA-Public Use
  Company Number: US-ELI_LILLY_AND_COMPANY-US201007002350

PATIENT
  Sex: Female
  Weight: 49.887 kg

DRUGS (7)
  1. FORTEO [Suspect]
     Indication: OSTEOPOROSIS
     Dosage: 20 UG, DAILY (1/D)
     Dates: end: 20100524
  2. FORTEO [Suspect]
     Dosage: 20 UG, DAILY (1/D)
     Dates: start: 20100530
  3. CALCIUM [Concomitant]
  4. VITAMIN D [Concomitant]
  5. ACIDOPHILUS [Concomitant]
  6. TYLENOL (CAPLET) [Concomitant]
     Dosage: 500 MG, UNK
  7. FLAXSEED OIL [Concomitant]

REACTIONS (18)
  - AGGRESSION [None]
  - BLOOD PRESSURE DECREASED [None]
  - BLOOD PRESSURE INCREASED [None]
  - BURNING SENSATION [None]
  - FEELING ABNORMAL [None]
  - FEELING JITTERY [None]
  - FEMUR FRACTURE [None]
  - GINGIVAL RECESSION [None]
  - HAEMOGLOBIN DECREASED [None]
  - HAEMORRHAGE [None]
  - HIP ARTHROPLASTY [None]
  - IMMOBILE [None]
  - JAW DISORDER [None]
  - MALAISE [None]
  - NAUSEA [None]
  - SENSITIVITY OF TEETH [None]
  - VASCULAR INJURY [None]
  - WEIGHT DECREASED [None]
